FAERS Safety Report 16860614 (Version 1)
Quarter: 2019Q3

REPORT INFORMATION
  Report Type: Report from Study
  Country: None (occurrence: US)
  Receive Date: 20190927
  Receipt Date: 20190927
  Transmission Date: 20191005
  Serious: Yes (Hospitalization, Other)
  Sender: FDA-Public Use
  Company Number: US-ABBVIE-19K-163-2913788-00

PATIENT
  Age: 72 Year
  Sex: Female

DRUGS (4)
  1. HUMIRA [Suspect]
     Active Substance: ADALIMUMAB
     Indication: CROHN^S DISEASE
     Route: 058
     Dates: start: 2009, end: 201803
  2. HUMIRA [Suspect]
     Active Substance: ADALIMUMAB
     Indication: PSORIASIS
     Route: 058
     Dates: start: 201803, end: 201803
  3. HUMIRA [Suspect]
     Active Substance: ADALIMUMAB
     Indication: RHEUMATOID ARTHRITIS
     Dosage: TOWARDS THE END OF THE YEAR
     Route: 058
     Dates: start: 2018, end: 2018
  4. HUMIRA [Suspect]
     Active Substance: ADALIMUMAB
     Route: 058
     Dates: start: 20190914

REACTIONS (13)
  - Myocardial infarction [Unknown]
  - Thrombosis [Recovered/Resolved]
  - Anal fistula [Recovering/Resolving]
  - Coronary arterial stent insertion [Unknown]
  - Perirectal abscess [Recovering/Resolving]
  - Vaginal fistula [Recovered/Resolved]
  - Abdominal discomfort [Recovering/Resolving]
  - Large intestine infection [Recovered/Resolved]
  - Abdominal pain upper [Unknown]
  - Bone pain [Unknown]
  - Proctalgia [Recovered/Resolved]
  - Vaginal infection [Recovered/Resolved]
  - Myocardial infarction [Recovered/Resolved]

NARRATIVE: CASE EVENT DATE: 2014
